FAERS Safety Report 24929899 (Version 2)
Quarter: 2025Q1

REPORT INFORMATION
  Report Type: Spontaneous
  Country: US (occurrence: US)
  Receive Date: 20250205
  Receipt Date: 20250212
  Transmission Date: 20250409
  Serious: Yes (Other)
  Sender: SANOFI AVENTIS
  Company Number: US-SA-2025SA035446

PATIENT
  Age: 27 Year
  Sex: Female
  Weight: 97.052 kg

DRUGS (3)
  1. DUPIXENT [Suspect]
     Active Substance: DUPILUMAB
     Indication: Asthma
     Route: 058
     Dates: start: 20250127, end: 20250127
  2. TRELEGY ELLIPTA [Concomitant]
     Active Substance: FLUTICASONE FUROATE\UMECLIDINIUM BROMIDE\VILANTEROL TRIFENATATE
  3. AZITHROMYCIN [Concomitant]
     Active Substance: AZITHROMYCIN

REACTIONS (5)
  - Anaphylactic reaction [Recovered/Resolved]
  - Flushing [Recovered/Resolved]
  - Asthma [Not Recovered/Not Resolved]
  - Wheezing [Not Recovered/Not Resolved]
  - Injection site urticaria [Recovered/Resolved]

NARRATIVE: CASE EVENT DATE: 20250127
